FAERS Safety Report 8845641 (Version 1)
Quarter: 2012Q4

REPORT INFORMATION
  Report Type: 
  Country: US (occurrence: US)
  Receive Date: 20121017
  Receipt Date: 20121017
  Transmission Date: 20130627
  Serious: Yes (Hospitalization)
  Sender: FDA-Public Use
  Company Number: US-ROCHE-1123843

PATIENT
  Sex: Female
  Weight: 17.6 kg

DRUGS (6)
  1. NUTROPIN AQ [Suspect]
     Indication: RENAL FAILURE CHRONIC
     Route: 058
     Dates: start: 19991213
  2. NUTROPIN AQ [Suspect]
     Indication: AZOTAEMIA
  3. CALCIUM CARBONATE [Concomitant]
     Dosage: 1tsp with meals.
     Route: 065
  4. FOLIC ACID [Concomitant]
     Dosage: qd
     Route: 065
  5. POTASSIUM CHLORIDE [Concomitant]
     Dosage: qd
     Route: 065
  6. EPOGEN [Concomitant]
     Dosage: tiw
     Route: 065

REACTIONS (2)
  - Blood pressure increased [Unknown]
  - Blood creatinine increased [Unknown]
